FAERS Safety Report 8903291 (Version 2)
Quarter: 2013Q1

REPORT INFORMATION
  Report Type: Spontaneous
  Country: US (occurrence: US)
  Receive Date: 20121113
  Receipt Date: 20130201
  Transmission Date: 20140127
  Serious: Yes (Other)
  Sender: FDA-Public Use
  Company Number: US-PFIZER INC-2012279589

PATIENT
  Age: 44 Year
  Sex: Female
  Weight: 61.7 kg

DRUGS (2)
  1. SOLU-MEDROL [Suspect]
     Indication: MULTIPLE SCLEROSIS
     Dosage: UNKNOWN DOSE 1X/DAY FOR THREE DAYS CONSECUTIVELY
     Route: 042
     Dates: start: 201203
  2. COPAXONE [Concomitant]
     Dosage: UNK

REACTIONS (7)
  - Anaphylactic shock [Recovered/Resolved]
  - Hyperventilation [Recovered/Resolved]
  - Respiratory rate increased [Recovered/Resolved]
  - Chest discomfort [Recovered/Resolved]
  - Obstructive airways disorder [Recovered/Resolved]
  - Dyspnoea [Recovered/Resolved]
  - Discomfort [Not Recovered/Not Resolved]
